FAERS Safety Report 15905129 (Version 1)
Quarter: 2019Q1

REPORT INFORMATION
  Report Type: Spontaneous
  Country: SE (occurrence: SE)
  Receive Date: 20190204
  Receipt Date: 20190204
  Transmission Date: 20190417
  Serious: Yes (Life-Threatening, Disabling)
  Sender: FDA-Public Use
  Company Number: SE-ASTRAZENECA-2019SE18436

PATIENT
  Age: 27 Year
  Sex: Female
  Weight: 89 kg

DRUGS (1)
  1. SEROQUEL [Suspect]
     Active Substance: QUETIAPINE FUMARATE
     Indication: PSYCHOTIC DISORDER
     Dosage: UNKNOWN DOSE AND FREQUENCY
     Route: 048
     Dates: start: 201711, end: 201807

REACTIONS (4)
  - Weight increased [Recovered/Resolved with Sequelae]
  - Skin striae [Recovered/Resolved with Sequelae]
  - Loss of personal independence in daily activities [Recovered/Resolved with Sequelae]
  - Vasodilatation [Recovered/Resolved with Sequelae]

NARRATIVE: CASE EVENT DATE: 201712
